FAERS Safety Report 9547685 (Version 2)
Quarter: 2014Q1

REPORT INFORMATION
  Report Type: Spontaneous
  Country: DE (occurrence: None)
  Receive Date: 20130920
  Receipt Date: 20140114
  Transmission Date: 20141002
  Serious: Yes (Other)
  Sender: FDA-Public Use
  Company Number: 2013MPI00561

PATIENT
  Age: 31 Year
  Sex: Male
  Weight: 91 kg

DRUGS (3)
  1. ADCETRIS [Suspect]
     Indication: HODGKIN^S DISEASE
     Route: 042
     Dates: start: 20130730, end: 20130820
  2. TAVEGIL [Suspect]
     Indication: PRODUCT USED FOR UNKNOWN INDICATION
     Dates: start: 20130820, end: 20130820
  3. PARACETAMOL (PARACETAMOL) [Concomitant]

REACTIONS (2)
  - Hepatitis cholestatic [None]
  - Hepatitis toxic [None]
